FAERS Safety Report 4914044-4 (Version None)
Quarter: 2006Q1

REPORT INFORMATION
  Report Type: 
  Country: None (occurrence: None)
  Receive Date: 20060216
  Receipt Date: 19971103
  Transmission Date: 20060701
  Serious: Yes (Disabling)
  Sender: FDA-Public Use
  Company Number: FR-ROCHE-89445

PATIENT
  Age: 16 Year
  Sex: Male
  Weight: 75 kg

DRUGS (4)
  1. ROACCUTANE [Suspect]
     Indication: ACNE
     Route: 048
     Dates: start: 19961002, end: 19970213
  2. ROACCUTANE [Suspect]
     Route: 048
     Dates: start: 19961002, end: 19961011
  3. ROACCUTANE [Suspect]
     Route: 048
     Dates: start: 19961012, end: 19961021
  4. ROACCUTANE [Suspect]
     Route: 048
     Dates: start: 19970213, end: 19970525

REACTIONS (3)
  - EPILEPSY [None]
  - STATUS EPILEPTICUS [None]
  - TINNITUS [None]
